FAERS Safety Report 13693720 (Version 7)
Quarter: 2019Q1

REPORT INFORMATION
  Report Type: Spontaneous
  Country: US (occurrence: US)
  Receive Date: 20170627
  Receipt Date: 20190320
  Transmission Date: 20190417
  Serious: Yes (Hospitalization, Other)
  Sender: FDA-Public Use
  Company Number: US-PFIZER INC-2017279904

PATIENT
  Age: 77 Year
  Sex: Male
  Weight: 118 kg

DRUGS (14)
  1. LISINOPRIL. [Concomitant]
     Active Substance: LISINOPRIL
     Dosage: UNK
  2. LYRICA [Suspect]
     Active Substance: PREGABALIN
     Dosage: 100 MG, 2X/DAY(PRESCRIBED AS 2 CAPSULES DAILY, USUALLY ONLY TAKES 1 CAPSULE BEFORE BEDTIME DAILY)
  3. VIAGRA [Concomitant]
     Active Substance: SILDENAFIL CITRATE
     Indication: ERECTILE DYSFUNCTION
     Dosage: 100 MG, UNK
  4. VIAGRA [Concomitant]
     Active Substance: SILDENAFIL CITRATE
     Dosage: 100 MG, AS NEEDED (100MG TAKEN BY MOUTH 1 HOUR BEFORE SEXUAL ACTIVITY AS NEEDED)
     Route: 048
  5. LYRICA [Suspect]
     Active Substance: PREGABALIN
     Indication: DIABETIC NEUROPATHY
     Dosage: 100 MG, 2X/DAY
     Route: 048
  6. LYRICA [Suspect]
     Active Substance: PREGABALIN
     Dosage: 100 MG, 2X/DAY
     Route: 048
  7. SIMVASTATIN. [Concomitant]
     Active Substance: SIMVASTATIN
     Dosage: 20 MG, UNK
  8. INSULIN [Concomitant]
     Active Substance: INSULIN NOS
     Indication: DIABETES MELLITUS
     Dosage: UNK
  9. LYRICA [Suspect]
     Active Substance: PREGABALIN
     Dosage: 100 MG, 1X/DAY(BEFORE BEDTIME)
  10. METOPROLOL. [Concomitant]
     Active Substance: METOPROLOL
     Dosage: UNK
  11. SIMVASTATIN. [Concomitant]
     Active Substance: SIMVASTATIN
     Indication: BLOOD CHOLESTEROL ABNORMAL
     Dosage: UNK
  12. HYDROCHLOROTHIAZIDE. [Concomitant]
     Active Substance: HYDROCHLOROTHIAZIDE
     Indication: ELECTROLYTE IMBALANCE
     Dosage: UNK
  13. LANTUS [Concomitant]
     Active Substance: INSULIN GLARGINE
     Indication: DIABETES MELLITUS
     Dosage: 40 IU, 1X/DAY(DAILY IN THE MORNING)
  14. GLIMEPIRIDE. [Concomitant]
     Active Substance: GLIMEPIRIDE
     Dosage: UNK

REACTIONS (11)
  - Peripheral swelling [Not Recovered/Not Resolved]
  - Postoperative wound infection [Unknown]
  - Blood pressure decreased [Unknown]
  - Drug ineffective [Unknown]
  - Somnolence [Unknown]
  - Pruritus [Not Recovered/Not Resolved]
  - Decubitus ulcer [Unknown]
  - Intentional product misuse [Unknown]
  - Feeling of relaxation [Unknown]
  - Fall [Unknown]
  - Weight fluctuation [Unknown]

NARRATIVE: CASE EVENT DATE: 201707
